FAERS Safety Report 17462605 (Version 1)
Quarter: 2020Q1

REPORT INFORMATION
  Report Type: Spontaneous
  Country: US (occurrence: US)
  Receive Date: 20191029
  Receipt Date: 20191029
  Transmission Date: 20200409
  Serious: Yes (Hospitalization)
  Sender: FDA-Public Use
  Company Number: None

PATIENT
  Age: 27 Year
  Sex: Male

DRUGS (7)
  1. THC VAPE [Suspect]
     Active Substance: .DELTA.8-TETRAHYDROCANNABINOL\DEVICE\HERBALS
  2. CBD VAPING [Suspect]
     Active Substance: CANNABIDIOL\DEVICE\HERBALS
  3. JUUL, MINT FLAVOR ONLY [Suspect]
     Active Substance: DEVICE\NICOTINE
  4. HASH OIL [CANNABIS OIL VAPING] [Suspect]
     Active Substance: CANNABIDIOL\DEVICE\HERBALS
  5. DABS, DAB WAX, DAB CARDS, WAX (THC VAPING) [Suspect]
     Active Substance: .DELTA.8-TETRAHYDROCANNABINOL\DEVICE\HERBALS
  6. SMART CART. SOME FLAVORS WERE JACK HERER, BANANA OG, OG KUCH, MIAMI HAZE [Suspect]
     Active Substance: CANNABIDIOL\.DELTA.8-TETRAHYDROCANNABINOL\DEVICE\HERBALS
  7. MARIJUANA VAPE [Suspect]
     Active Substance: CANNABIS SATIVA SUBSP. INDICA TOP\DEVICE

REACTIONS (7)
  - Pyrexia [None]
  - Nausea [None]
  - Dyspnoea [None]
  - Chest pain [None]
  - Anxiety [None]
  - Headache [None]
  - Vomiting [None]
